FAERS Safety Report 7633342-7 (Version None)
Quarter: 2011Q3

REPORT INFORMATION
  Report Type: 
  Country: None (occurrence: None)
  Receive Date: 20110725
  Receipt Date: 20100813
  Transmission Date: 20111222
  Serious: Yes (Hospitalization)
  Sender: FDA-Public Use
  Company Number: US-BRISTOL-MYERS SQUIBB COMPANY-15239627

PATIENT

DRUGS (1)
  1. SPRYCEL [Suspect]
     Route: 042

REACTIONS (1)
  - INFECTION [None]
